FAERS Safety Report 5353290-5 (Version None)
Quarter: 2007Q2

REPORT INFORMATION
  Report Type: 
  Country: None (occurrence: None)
  Receive Date: 20070518
  Receipt Date: 20070212
  Transmission Date: 20071010
  Serious: No
  Sender: FDA-Public Use
  Company Number: TPA2007A00374

PATIENT
  Age: 3 Decade
  Sex: Male

DRUGS (1)
  1. ROZEREM [Suspect]
     Dosage: PER ORAL
     Route: 048
     Dates: start: 20060701, end: 20060701

REACTIONS (3)
  - AGITATION [None]
  - RESTLESS LEGS SYNDROME [None]
  - RESTLESSNESS [None]
